FAERS Safety Report 25564428 (Version 1)
Quarter: 2025Q3

REPORT INFORMATION
  Report Type: Spontaneous
  Country: US (occurrence: US)
  Receive Date: 20250716
  Receipt Date: 20250716
  Transmission Date: 20251020
  Serious: No
  Sender: NOVO NORDISK
  Company Number: US-NOVOPROD-1330810

PATIENT
  Age: 63 Year
  Sex: Male

DRUGS (3)
  1. OZEMPIC [Suspect]
     Active Substance: SEMAGLUTIDE
     Indication: Type 2 diabetes mellitus
     Route: 058
     Dates: start: 20241127
  2. DEXAMETHASONE [Suspect]
     Active Substance: DEXAMETHASONE
     Indication: Product used for unknown indication
     Dates: start: 2020
  3. PREDNISONE [Concomitant]
     Active Substance: PREDNISONE
     Indication: Product used for unknown indication

REACTIONS (1)
  - Psychotic disorder [Recovered/Resolved]

NARRATIVE: CASE EVENT DATE: 20241128
